FAERS Safety Report 22034409 (Version 1)
Quarter: 2023Q1

REPORT INFORMATION
  Report Type: Spontaneous
  Country: US (occurrence: None)
  Receive Date: 20230222
  Receipt Date: 20230222
  Transmission Date: 20230418
  Serious: Yes (Life-Threatening)
  Sender: FDA-Public Use
  Company Number: None

PATIENT
  Age: 72 Year
  Sex: Male
  Weight: 86 kg

DRUGS (1)
  1. PROPOFOL [Suspect]
     Active Substance: PROPOFOL
     Indication: Endotracheal intubation
     Dosage: OTHER FREQUENCY : MCG/KG/MIN;?
     Route: 042
     Dates: start: 20230106, end: 20230107

REACTIONS (7)
  - Torsade de pointes [None]
  - Bradycardia [None]
  - Supraventricular extrasystoles [None]
  - Ventricular extrasystoles [None]
  - Bundle branch block [None]
  - Extrasystoles [None]
  - Blood potassium decreased [None]

NARRATIVE: CASE EVENT DATE: 20230107
